FAERS Safety Report 9250242 (Version 5)
Quarter: 2014Q1

REPORT INFORMATION
  Report Type: Spontaneous
  Country: US (occurrence: US)
  Receive Date: 20130424
  Receipt Date: 20140325
  Transmission Date: 20141002
  Serious: Yes (Disabling, Other)
  Sender: FDA-Public Use
  Company Number: US-ASTRAZENECA-2013SE27356

PATIENT
  Age: 23248 Day
  Sex: Female
  Weight: 52.2 kg

DRUGS (23)
  1. NEXIUM [Suspect]
     Indication: GASTRIC ULCER
     Dosage: ONCE A DAY
     Route: 048
     Dates: end: 2009
  2. NEXIUM [Suspect]
     Indication: GASTRIC OPERATION
     Dosage: ONCE A DAY
     Route: 048
     Dates: end: 2009
  3. NEXIUM [Suspect]
     Indication: GASTRIC ULCER
     Route: 048
     Dates: start: 2004, end: 2009
  4. NEXIUM [Suspect]
     Indication: GASTRIC OPERATION
     Route: 048
     Dates: start: 2004, end: 2009
  5. NEXIUM [Suspect]
     Indication: GASTRIC ULCER
     Route: 048
     Dates: start: 20040719
  6. NEXIUM [Suspect]
     Indication: GASTRIC OPERATION
     Route: 048
     Dates: start: 20040719
  7. OMEPRAZOLE [Suspect]
     Route: 048
  8. OMEPRAZOLE [Suspect]
     Route: 048
     Dates: start: 20110422
  9. PREVACID [Concomitant]
     Dosage: ONE A DAY
  10. PRAVASTATIN [Concomitant]
  11. METOCLOPRAMIDE [Concomitant]
     Dates: start: 20060601
  12. AMLODIPINE [Concomitant]
  13. AMLODIPINE [Concomitant]
     Dates: start: 20111019
  14. QUINAPRIL [Concomitant]
     Dates: start: 20050510
  15. DICYCLOMINE [Concomitant]
  16. CHOLESTYRAMINE [Concomitant]
  17. CALCIUM [Concomitant]
  18. MULTIVITAMINS [Concomitant]
  19. FOSAMAX [Concomitant]
     Dates: start: 20050506
  20. TEMAZEPAM [Concomitant]
     Dates: start: 20050509
  21. HCTZ [Concomitant]
     Dates: start: 20050510
  22. EFFEXOR [Concomitant]
     Dates: start: 20050530
  23. ZOLOFT [Concomitant]
     Dates: start: 20060527

REACTIONS (13)
  - Multiple fractures [Unknown]
  - Femur fracture [Unknown]
  - Osteoporosis [Unknown]
  - Wrist fracture [Unknown]
  - Radius fracture [Unknown]
  - Bone disorder [Unknown]
  - Tibia fracture [Unknown]
  - Fall [Unknown]
  - Cataract [Unknown]
  - Vitamin D deficiency [Unknown]
  - Fibula fracture [Unknown]
  - Osteopenia [Unknown]
  - Osteoarthritis [Unknown]
